FAERS Safety Report 13090731 (Version 2)
Quarter: 2017Q1

REPORT INFORMATION
  Report Type: Spontaneous
  Country: GB (occurrence: GB)
  Receive Date: 20170105
  Receipt Date: 20170116
  Transmission Date: 20170428
  Serious: Yes (Life-Threatening, Other)
  Sender: FDA-Public Use
  Company Number: GB-CONCORDIA PHARMACEUTICALS INC.-GSH201701-000010

PATIENT
  Age: 51 Year
  Sex: Male

DRUGS (6)
  1. DARUNAVIR [Suspect]
     Active Substance: DARUNAVIR
  2. DIGOXIN. [Suspect]
     Active Substance: DIGOXIN
  3. RITONAVIR. [Suspect]
     Active Substance: RITONAVIR
  4. COTRIMOXAZOLE [Concomitant]
     Active Substance: SULFAMETHOXAZOLE\TRIMETHOPRIM
  5. DOLUTEGRAVIR [Concomitant]
     Active Substance: DOLUTEGRAVIR
  6. RILPIVIRINE [Concomitant]
     Active Substance: RILPIVIRINE

REACTIONS (3)
  - Drug interaction [Recovered/Resolved]
  - Drug level increased [Recovered/Resolved]
  - Toxicity to various agents [Recovered/Resolved]
